FAERS Safety Report 6299973-4 (Version None)
Quarter: 2009Q3

REPORT INFORMATION
  Report Type: 
  Country: None (occurrence: None)
  Receive Date: 20090806
  Receipt Date: 20090727
  Transmission Date: 20100115
  Serious: Yes (Hospitalization, Other)
  Sender: FDA-Public Use
  Company Number: US-CELGENEUS-163-21880-09061276

PATIENT
  Sex: Female
  Weight: 110 kg

DRUGS (11)
  1. REVLIMID [Suspect]
     Indication: MULTIPLE MYELOMA
     Route: 048
     Dates: start: 20081112, end: 20090409
  2. REVLIMID [Suspect]
     Route: 048
     Dates: start: 20090529, end: 20090626
  3. REVLIMID [Suspect]
     Route: 048
     Dates: start: 20090703
  4. LIPITOR [Concomitant]
     Indication: DRUG USE FOR UNKNOWN INDICATION
     Route: 065
  5. LISINOPRIL [Concomitant]
     Indication: DRUG USE FOR UNKNOWN INDICATION
     Route: 065
  6. OXYCODONE HCL [Concomitant]
     Indication: PAIN
     Dosage: 1-2 TABLETS
     Route: 065
  7. TYLENOL (CAPLET) [Concomitant]
     Indication: PAIN
     Route: 065
  8. DEXAMETHASONE [Concomitant]
     Indication: DRUG USE FOR UNKNOWN INDICATION
     Route: 065
  9. ARANESP [Concomitant]
     Indication: RED BLOOD CELL COUNT DECREASED
     Route: 065
     Dates: start: 20090101
  10. WHOLE BLOOD [Concomitant]
     Indication: RED BLOOD CELL COUNT DECREASED
     Route: 065
     Dates: start: 20090101
  11. ASPIRIN [Concomitant]
     Indication: DRUG USE FOR UNKNOWN INDICATION
     Route: 065
     Dates: end: 20090626

REACTIONS (3)
  - DEEP VEIN THROMBOSIS [None]
  - NORMOCHROMIC NORMOCYTIC ANAEMIA [None]
  - RENAL CELL CARCINOMA [None]
